FAERS Safety Report 11047945 (Version 5)
Quarter: 2015Q2

REPORT INFORMATION
  Report Type: Report from Study
  Country: US (occurrence: US)
  Receive Date: 20150420
  Receipt Date: 20150604
  Transmission Date: 20150821
  Serious: Yes (Life-Threatening, Hospitalization, Other)
  Sender: FDA-Public Use
  Company Number: US-PFIZER INC-2015130047

PATIENT
  Age: 3 Year
  Sex: Male
  Weight: 12.1 kg

DRUGS (5)
  1. NEULASTA [Concomitant]
     Active Substance: PEGFILGRASTIM
  2. CRIZOTINIB [Suspect]
     Active Substance: CRIZOTINIB
     Indication: NEUROBLASTOMA
     Dosage: 168 MG, TWICE A DAY
     Route: 048
     Dates: start: 20150204
  3. CRIZOTINIB [Suspect]
     Active Substance: CRIZOTINIB
     Dosage: UNK
     Dates: start: 20150406, end: 20150412
  4. CISPLATIN. [Suspect]
     Active Substance: CISPLATIN
     Indication: NEUROBLASTOMA
     Dosage: 29 MG, DAILY FOR 4 DAYS
     Route: 042
  5. VP-16 [Suspect]
     Active Substance: ETOPOSIDE
     Indication: NEUROBLASTOMA
     Dosage: 116 MG, DAILY FOR 3 DAYS
     Route: 042

REACTIONS (10)
  - Hypokalaemia [Unknown]
  - Cardiac arrest [Recovered/Resolved]
  - Colitis [Recovered/Resolved]
  - Febrile neutropenia [Unknown]
  - Dehydration [Unknown]
  - Decreased appetite [Unknown]
  - Device related infection [Recovered/Resolved]
  - Vomiting [Unknown]
  - Hyponatraemia [Unknown]
  - Nausea [Unknown]

NARRATIVE: CASE EVENT DATE: 20150410
